FAERS Safety Report 21663237 (Version 2)
Quarter: 2022Q4

REPORT INFORMATION
  Report Type: Spontaneous
  Country: US (occurrence: US)
  Receive Date: 20221130
  Receipt Date: 20221201
  Transmission Date: 20230112
  Serious: No
  Sender: FDA-Public Use
  Company Number: ENDG22-05205

PATIENT
  Age: 67 Year
  Sex: Male

DRUGS (2)
  1. VARENICLINE [Suspect]
     Active Substance: VARENICLINE
     Indication: Smoking cessation therapy
     Dosage: 1 DF, OD (DAY ONE TO THREE ONE TABLET IN THE MORNING)
     Route: 048
     Dates: start: 202208, end: 202208
  2. VARENICLINE [Suspect]
     Active Substance: VARENICLINE
     Dosage: 1 DF, BID (DAY FOUR TO SEVEN ONE IN THE MORNING AND ONE IN THE EVENING)
     Route: 048
     Dates: start: 202208, end: 202208

REACTIONS (7)
  - Mood altered [Not Recovered/Not Resolved]
  - Abdominal discomfort [Not Recovered/Not Resolved]
  - Agitation [Not Recovered/Not Resolved]
  - Dizziness [Not Recovered/Not Resolved]
  - Flatulence [Not Recovered/Not Resolved]
  - Insomnia [Not Recovered/Not Resolved]
  - Mood swings [Not Recovered/Not Resolved]

NARRATIVE: CASE EVENT DATE: 20220801
